FAERS Safety Report 8901946 (Version 1)
Quarter: 2012Q4

REPORT INFORMATION
  Report Type: Spontaneous
  Country: US (occurrence: None)
  Receive Date: 20121109
  Receipt Date: 20121109
  Transmission Date: 20130627
  Serious: Yes (Other)
  Sender: FDA-Public Use
  Company Number: None

PATIENT
  Age: 80 Year
  Sex: Male
  Weight: 98.88 kg

DRUGS (1)
  1. METOPROLOL [Suspect]
     Indication: BLOOD PRESSURE HIGH
     Dosage: 100 MG 1 TIME/DAY BY MOUTH
     Route: 048

REACTIONS (5)
  - Diarrhoea [None]
  - Nausea [None]
  - Flatulence [None]
  - Decreased appetite [None]
  - Ill-defined disorder [None]
